FAERS Safety Report 6341681-5 (Version None)
Quarter: 2009Q3

REPORT INFORMATION
  Report Type: 
  Country: None (occurrence: None)
  Receive Date: 20090902
  Receipt Date: 20090902
  Transmission Date: 20100115
  Serious: Yes (Other)
  Sender: FDA-Public Use
  Company Number: None

PATIENT

DRUGS (1)
  1. ONDANSETRON [Suspect]
     Indication: VOMITING
     Dosage: ONCE PO Q8 PRN
     Route: 048
     Dates: start: 20090106, end: 20090224

REACTIONS (1)
  - DRUG INEFFECTIVE [None]
